FAERS Safety Report 7554670-X (Version None)
Quarter: 2011Q2

REPORT INFORMATION
  Report Type: 
  Country: None (occurrence: None)
  Receive Date: 20110610
  Receipt Date: 20110603
  Transmission Date: 20111010
  Serious: Yes (Hospitalization)
  Sender: FDA-Public Use
  Company Number: US-2011-10358

PATIENT
  Age: 13 Month
  Sex: Male

DRUGS (4)
  1. METHOTREXATE [Concomitant]
  2. CYCLOSPORINE [Concomitant]
  3. CYCLOPHOSPHAMIDE [Suspect]
     Indication: STEM CELL TRANSPLANT
     Dosage: INTRAVENOUS
     Route: 042
  4. BUSULFEX [Suspect]
     Indication: STEM CELL TRANSPLANT
     Dosage: INTRAVENOUS
     Route: 042

REACTIONS (11)
  - PETECHIAE [None]
  - EPISTAXIS [None]
  - PULMONARY OEDEMA [None]
  - HAEMATURIA [None]
  - ALLOIMMUNISATION [None]
  - HAEMATOMA [None]
  - THROMBOCYTOPENIA [None]
  - NO THERAPEUTIC RESPONSE [None]
  - PULMONARY HAEMORRHAGE [None]
  - CARDIOPULMONARY FAILURE [None]
  - FLUID OVERLOAD [None]
